FAERS Safety Report 9434864 (Version 2)
Quarter: 2013Q3

REPORT INFORMATION
  Report Type: Report from Study
  Country: CA (occurrence: CA)
  Receive Date: 20130801
  Receipt Date: 20130805
  Transmission Date: 20140515
  Serious: Yes (Other)
  Sender: FDA-Public Use
  Company Number: CA-JNJFOC-20130715177

PATIENT
  Sex: Male

DRUGS (7)
  1. REMICADE [Suspect]
     Indication: CROHN^S DISEASE
     Dosage: FATHER^S DOSING
     Route: 064
  2. REMICADE [Suspect]
     Indication: CROHN^S DISEASE
     Dosage: FATHER^S DOSING
     Route: 064
  3. REMICADE [Suspect]
     Indication: CROHN^S DISEASE
     Dosage: FATHER^S DOSING
     Route: 064
     Dates: start: 2010
  4. AMITRIPTYLINE [Concomitant]
     Indication: SLEEP DISORDER THERAPY
     Route: 065
  5. IMURAN [Concomitant]
     Indication: CROHN^S DISEASE
     Route: 048
  6. AZATHIOPRINE [Concomitant]
     Dosage: 3 TABLETS
     Route: 048
  7. TYLENOL NO.2 [Concomitant]
     Indication: PAIN
     Route: 065

REACTIONS (4)
  - Blood glucose decreased [Recovered/Resolved]
  - Large for dates baby [Unknown]
  - Premature baby [Not Recovered/Not Resolved]
  - Foetal exposure during pregnancy [Recovered/Resolved]
